FAERS Safety Report 7166362-X (Version None)
Quarter: 2010Q4

REPORT INFORMATION
  Report Type: 
  Country: None (occurrence: None)
  Receive Date: 20101216
  Receipt Date: 20101019
  Transmission Date: 20110411
  Serious: No
  Sender: FDA-Public Use
  Company Number: US-ABBOTT-10P-163-0679858-00

PATIENT
  Sex: Female
  Weight: 65.83 kg

DRUGS (1)
  1. TRILIPIX [Suspect]
     Indication: BLOOD TRIGLYCERIDES INCREASED
     Dates: start: 20090101

REACTIONS (4)
  - FEELING HOT [None]
  - RASH [None]
  - SKIN BURNING SENSATION [None]
  - URTICARIA [None]
